FAERS Safety Report 6992431-0 (Version None)
Quarter: 2010Q3

REPORT INFORMATION
  Report Type: 
  Country: None (occurrence: None)
  Receive Date: 20100917
  Receipt Date: 20100908
  Transmission Date: 20110219
  Serious: Yes (Other)
  Sender: FDA-Public Use
  Company Number: PHHY2010US56793

PATIENT
  Sex: Female
  Weight: 87.982 kg

DRUGS (7)
  1. EXJADE [Suspect]
     Indication: MYELODYSPLASTIC SYNDROME
     Dosage: 500 MG, QOD
     Route: 048
     Dates: start: 20070511
  2. EXJADE [Suspect]
     Indication: IRON OVERLOAD
  3. VIDAZA [Suspect]
     Indication: MYELODYSPLASTIC SYNDROME
     Dosage: 112MG IV DAILY X 5D
     Route: 042
  4. METFORMIN [Concomitant]
     Route: 048
  5. LEXAPRO [Concomitant]
     Route: 048
  6. NEXIUM [Concomitant]
     Route: 048
  7. SINGULAIR [Concomitant]
     Route: 048

REACTIONS (1)
  - ULCERATIVE KERATITIS [None]
